APPROVED DRUG PRODUCT: OTEZLA XR
Active Ingredient: APREMILAST
Strength: 75MG
Dosage Form/Route: TABLET, EXTENDED RELEASE;ORAL
Application: N210745 | Product #001
Applicant: AMGEN INC
Approved: Aug 29, 2025 | RLD: Yes | RS: Yes | Type: RX

PATENTS:
Patent 11752129 | Expires: May 27, 2042
Patent 11752129 | Expires: May 27, 2042
Patent 11752129 | Expires: May 27, 2042
Patent 10092541 | Expires: May 29, 2034
Patent 12427136 | Expires: May 27, 2042
Patent 12427136 | Expires: May 27, 2042
Patent 12427136 | Expires: May 27, 2042
Patent 11969409 | Expires: May 27, 2042
Patent 7427638 | Expires: Feb 16, 2028

EXCLUSIVITY:
Code: M-299 | Date: Jul 20, 2026
Code: ODE* | Date: Jul 19, 2026
Code: PED | Date: Jan 19, 2027
Code: PED | Date: Jan 20, 2027